FAERS Safety Report 6863974-5 (Version None)
Quarter: 2010Q3

REPORT INFORMATION
  Report Type: 
  Country: None (occurrence: None)
  Receive Date: 20100721
  Receipt Date: 20080408
  Transmission Date: 20110219
  Serious: No
  Sender: FDA-Public Use
  Company Number: US-PFIZER INC-2008023835

PATIENT
  Sex: Male
  Weight: 93.9 kg

DRUGS (6)
  1. CHANTIX [Suspect]
     Indication: SMOKING CESSATION THERAPY
     Route: 048
     Dates: start: 20071009, end: 20071201
  2. HERBAL NOS/MINERALS NOS [Concomitant]
     Route: 048
  3. TRACE ELEMENTS [Concomitant]
     Route: 048
  4. WARFARIN SODIUM [Concomitant]
     Route: 048
  5. CARDIAC THERAPY [Concomitant]
     Route: 048
  6. DRUG, UNSPECIFIED [Concomitant]
     Route: 048

REACTIONS (2)
  - DIZZINESS [None]
  - TREMOR [None]
